FAERS Safety Report 9203230 (Version 3)
Quarter: 2013Q3

REPORT INFORMATION
  Report Type: Report from Study
  Country: CA (occurrence: CA)
  Receive Date: 20130402
  Receipt Date: 20130805
  Transmission Date: 20140515
  Serious: Yes (Other)
  Sender: FDA-Public Use
  Company Number: CA-JNJFOC-20130315547

PATIENT
  Sex: Male
  Weight: 102 kg

DRUGS (5)
  1. REMICADE [Suspect]
     Indication: CROHN^S DISEASE
     Route: 042
     Dates: start: 20130410
  2. REMICADE [Suspect]
     Indication: CROHN^S DISEASE
     Route: 042
  3. REMICADE [Suspect]
     Indication: CROHN^S DISEASE
     Dosage: 10 MG/KG
     Route: 042
  4. REMICADE [Suspect]
     Indication: CROHN^S DISEASE
     Route: 042
     Dates: start: 2009
  5. REMICADE [Suspect]
     Indication: CROHN^S DISEASE
     Dosage: HAD 6 INFUSIONS AT 5 MG/KG DOSE
     Route: 042
     Dates: start: 2008

REACTIONS (4)
  - Scrotal swelling [Not Recovered/Not Resolved]
  - Gastrointestinal disorder [Not Recovered/Not Resolved]
  - Localised infection [Unknown]
  - Drug ineffective [Recovered/Resolved]
